FAERS Safety Report 6106066-5 (Version None)
Quarter: 2009Q1

REPORT INFORMATION
  Report Type: 
  Country: None (occurrence: None)
  Receive Date: 20090306
  Receipt Date: 20090226
  Transmission Date: 20090719
  Serious: Yes (Other)
  Sender: FDA-Public Use
  Company Number: SE-ROCHE-598468

PATIENT

DRUGS (3)
  1. CAPECITABINE [Suspect]
     Dosage: ROUTE AS PER PROTOCOL
     Route: 048
     Dates: start: 20080925, end: 20081106
  2. BEVACIZUMAB [Suspect]
     Dosage: INFUSION, ROUTE+ FORM AS PROTOCOL
     Route: 042
     Dates: start: 20080925, end: 20081106
  3. OXALIPLATIN [Suspect]
     Dosage: FORM:INFUSION AS PER PROTOCOL
     Route: 042
     Dates: start: 20080925, end: 20081106

REACTIONS (2)
  - ABDOMINAL PAIN UPPER [None]
  - PEPTIC ULCER [None]
